FAERS Safety Report 16804800 (Version 7)
Quarter: 2020Q2

REPORT INFORMATION
  Report Type: Report from Study
  Country: None (occurrence: US)
  Receive Date: 20190913
  Receipt Date: 20200630
  Transmission Date: 20200713
  Serious: Yes (Other)
  Sender: FDA-Public Use
  Company Number: US-BIOVITRUM-2019US2887

PATIENT
  Sex: Female

DRUGS (12)
  1. HYDROCHLOROTHIAZIDE. [Concomitant]
     Active Substance: HYDROCHLOROTHIAZIDE
  2. ALLOPURINOL. [Concomitant]
     Active Substance: ALLOPURINOL
  3. KINERET [Suspect]
     Active Substance: ANAKINRA
     Indication: RHEUMATOID ARTHRITIS
     Route: 058
     Dates: start: 20190816, end: 20190901
  4. VITAMIN D [Concomitant]
     Active Substance: VITAMIN D NOS
  5. PRAMIPEXOLE. [Concomitant]
     Active Substance: PRAMIPEXOLE
  6. KINERET [Suspect]
     Active Substance: ANAKINRA
     Route: 058
     Dates: start: 20190813
  7. EYE MEDICATION [Concomitant]
  8. LOSARTAN POTASSIUM. [Concomitant]
     Active Substance: LOSARTAN POTASSIUM
  9. PREDNISONE. [Concomitant]
     Active Substance: PREDNISONE
  10. OMEPRAZOLE. [Concomitant]
     Active Substance: OMEPRAZOLE
  11. KINERET [Suspect]
     Active Substance: ANAKINRA
     Route: 058
     Dates: start: 20190911
  12. LEVOTHYROXINE. [Concomitant]
     Active Substance: LEVOTHYROXINE

REACTIONS (8)
  - Rash macular [Unknown]
  - Rash [Unknown]
  - Product dose omission [Unknown]
  - Wound [Recovered/Resolved]
  - Cellulitis [Unknown]
  - Injection site erythema [Unknown]
  - Infection [Recovered/Resolved]
  - Back pain [Unknown]
